FAERS Safety Report 15189346 (Version 4)
Quarter: 2021Q4

REPORT INFORMATION
  Report Type: Spontaneous
  Country: US (occurrence: US)
  Receive Date: 20180724
  Receipt Date: 20211201
  Transmission Date: 20220303
  Serious: No
  Sender: FDA-Public Use
  Company Number: US-TAKEDA-2018TUS022851

PATIENT
  Age: 55 Year
  Sex: Female
  Weight: 81.633 kg

DRUGS (4)
  1. ENTYVIO [Suspect]
     Active Substance: VEDOLIZUMAB
     Indication: Colitis ulcerative
     Dosage: 300 MILLIGRAM
     Route: 042
     Dates: start: 20180202
  2. VITAMIN D NOS [Concomitant]
     Active Substance: VITAMIN D NOS
     Indication: Vitamin D decreased
     Dosage: UNK UNK, QD
     Route: 048
  3. SYNTHROID [Concomitant]
     Active Substance: LEVOTHYROXINE SODIUM
     Indication: Hypothyroidism
     Dosage: UNK UNK, QD
     Route: 048
  4. CELEXA                             /00582602/ [Concomitant]
     Indication: Depression
     Dosage: 20 MILLIGRAM, QD
     Route: 048
     Dates: start: 201804

REACTIONS (7)
  - Mycobacterium tuberculosis complex test positive [Unknown]
  - Alopecia [Not Recovered/Not Resolved]
  - Mood swings [Not Recovered/Not Resolved]
  - Gastrointestinal disorder [Unknown]
  - C-reactive protein increased [Unknown]
  - SARS-CoV-1 test positive [Unknown]
  - Nasopharyngitis [Unknown]

NARRATIVE: CASE EVENT DATE: 20181005
